FAERS Safety Report 9380145 (Version 1)
Quarter: 2013Q3

REPORT INFORMATION
  Report Type: Spontaneous
  Country: CA (occurrence: CA)
  Receive Date: 20130702
  Receipt Date: 20130702
  Transmission Date: 20140515
  Serious: Yes (Other)
  Sender: FDA-Public Use
  Company Number: CA-PFIZER INC-2013189669

PATIENT
  Age: 63 Year
  Sex: Female

DRUGS (5)
  1. LIDOCAINE HCL [Suspect]
     Indication: NERVE BLOCK
     Dosage: 1%, 3 ML
     Route: 061
  2. LIDOCAINE HCL [Suspect]
     Dosage: 2%, 13 ML
  3. OXYGEN [Concomitant]
     Dosage: 3L/MIN
     Route: 045
  4. MIDAZOLAM [Concomitant]
     Indication: SEDATION
     Dosage: 1 MG
     Route: 042
  5. DEXTROSE [Concomitant]
     Dosage: 5%, 2 ML

REACTIONS (5)
  - Drug administered at inappropriate site [Recovering/Resolving]
  - Toxicity to various agents [Recovered/Resolved]
  - Hypoaesthesia oral [Recovered/Resolved]
  - Syncope [Recovered/Resolved]
  - Dysgeusia [Recovered/Resolved]
